FAERS Safety Report 9700401 (Version 1)
Quarter: 2013Q4

REPORT INFORMATION
  Report Type: Spontaneous
  Country: FR (occurrence: FR)
  Receive Date: 20131121
  Receipt Date: 20131121
  Transmission Date: 20140711
  Serious: Yes (Other)
  Sender: FDA-Public Use
  Company Number: FR-ASTRAZENECA-2013SE84412

PATIENT
  Age: 66 Year
  Sex: Female

DRUGS (1)
  1. XEROQUEL [Suspect]
     Indication: BIPOLAR I DISORDER
     Dosage: 300 MG, DAILY WITH THREE DAYS OF PROGRESSIVE INCREASE OF DOSES
     Route: 048
     Dates: start: 201310

REACTIONS (2)
  - Muscle contracture [Unknown]
  - Akathisia [Unknown]
